FAERS Safety Report 7771385-3 (Version None)
Quarter: 2011Q3

REPORT INFORMATION
  Report Type: 
  Country: None (occurrence: None)
  Receive Date: 20110920
  Receipt Date: 20110914
  Transmission Date: 20111222
  Serious: Yes (Other)
  Sender: FDA-Public Use
  Company Number: 20108199

PATIENT
  Sex: Female

DRUGS (6)
  1. SINEQUAN [Concomitant]
  2. LIORESAL [Suspect]
     Indication: MUSCLE SPASTICITY
     Dosage: 476.2-232.8 MCG, DAILY, INTRATHECAL
     Route: 037
  3. FLUOXETINE [Concomitant]
  4. NAPROXEN (ALEVE) [Concomitant]
  5. CLONAZEPAM [Concomitant]
  6. VYVANSE [Concomitant]

REACTIONS (7)
  - PAIN [None]
  - MUSCLE SPASTICITY [None]
  - OVERDOSE [None]
  - GAIT DISTURBANCE [None]
  - CONDITION AGGRAVATED [None]
  - DRUG INEFFECTIVE [None]
  - ASTHENIA [None]
